FAERS Safety Report 19904909 (Version 1)
Quarter: 2021Q3

REPORT INFORMATION
  Report Type: Spontaneous
  Country: US (occurrence: US)
  Receive Date: 20210930
  Receipt Date: 20210930
  Transmission Date: 20211014
  Serious: No
  Sender: FDA-Public Use
  Company Number: None

PATIENT
  Age: 31 Year
  Sex: Female

DRUGS (1)
  1. THC EDIBLE [Suspect]
     Active Substance: .DELTA.8-TETRAHYDROCANNABINOL\HERBALS

REACTIONS (9)
  - Emotional distress [None]
  - Breath odour [None]
  - Aggression [None]
  - Abnormal behaviour [None]
  - Conversion disorder [None]
  - Screaming [None]
  - Mania [None]
  - Delusion [None]
  - Anxiety [None]

NARRATIVE: CASE EVENT DATE: 20210909
